FAERS Safety Report 7900124-8 (Version None)
Quarter: 2011Q4

REPORT INFORMATION
  Report Type: 
  Country: None (occurrence: None)
  Receive Date: 20111108
  Receipt Date: 20111027
  Transmission Date: 20120403
  Serious: No
  Sender: FDA-Public Use
  Company Number: US-BIOGENIDEC-2011BI035738

PATIENT
  Sex: Female

DRUGS (1)
  1. TYSABRI [Suspect]
     Indication: MULTIPLE SCLEROSIS
     Route: 042
     Dates: start: 20110228

REACTIONS (9)
  - HEAD INJURY [None]
  - FALL [None]
  - DIARRHOEA [None]
  - URINARY INCONTINENCE [None]
  - NECK PAIN [None]
  - GAIT DISTURBANCE [None]
  - BLOOD IRON ABNORMAL [None]
  - BACK PAIN [None]
  - CONSTIPATION [None]
